FAERS Safety Report 7180193-6 (Version None)
Quarter: 2010Q4

REPORT INFORMATION
  Report Type: 
  Country: None (occurrence: None)
  Receive Date: 20101208
  Receipt Date: 20101117
  Transmission Date: 20110411
  Serious: Yes (Other)
  Sender: FDA-Public Use
  Company Number: US201011004839

PATIENT
  Age: 56 Year
  Sex: Male

DRUGS (4)
  1. CYMBALTA [Suspect]
     Indication: BACK PAIN
     Dosage: 60 MG, DAILY (1/D)
     Dates: start: 20100101
  2. ARTHROTEC (DICLOFENAC SODIUM, MSOPROSTOL) [Concomitant]
  3. OXYCODONE HCL [Concomitant]
  4. UROXATRAL [Concomitant]

REACTIONS (2)
  - ABNORMAL DREAMS [None]
  - HEPATIC ENZYME INCREASED [None]
